FAERS Safety Report 7236725-2 (Version None)
Quarter: 2011Q1

REPORT INFORMATION
  Report Type: 
  Country: None (occurrence: None)
  Receive Date: 20110120
  Receipt Date: 20110118
  Transmission Date: 20110831
  Serious: Yes (Life-Threatening)
  Sender: FDA-Public Use
  Company Number: FR-AMGEN-FRACT2011002766

PATIENT

DRUGS (11)
  1. FILGRASTIM [Suspect]
     Indication: ANAEMIA
     Dosage: UNK
     Dates: start: 20100708
  2. PEGINTERFERON ALFA-2A [Suspect]
     Indication: HEPATITIS VIRAL
     Dosage: UNK UNK, QWK
     Route: 065
     Dates: start: 20100226
  3. RAMIPRIL [Concomitant]
     Dosage: UNK
     Dates: start: 20090416
  4. INTELENCE [Concomitant]
     Dosage: UNK
     Dates: start: 20090416
  5. RIBAVIRIN [Suspect]
     Indication: HEPATITIS VIRAL
     Dosage: 200 MG, Q4H
     Route: 065
     Dates: start: 20100624
  6. EPOETIN BETA [Suspect]
     Indication: NEUTROPENIA
     Dosage: 3000 IU, UNK
     Route: 065
     Dates: start: 20100722
  7. KEPPRA [Concomitant]
     Dosage: UNK
     Dates: start: 20060115
  8. LEDERFOLINE [Concomitant]
     Dosage: UNK
     Dates: start: 20100708
  9. ROSUVASTATIN [Concomitant]
  10. ISENTRESS [Concomitant]
     Dosage: UNK
     Dates: start: 20090416
  11. METFORMIN HCL [Concomitant]
     Dosage: UNK
     Dates: start: 20080118

REACTIONS (1)
  - B-CELL LYMPHOMA [None]
